FAERS Safety Report 24384858 (Version 1)
Quarter: 2024Q4

REPORT INFORMATION
  Report Type: Spontaneous
  Country: CA (occurrence: CA)
  Receive Date: 20241001
  Receipt Date: 20241001
  Transmission Date: 20250115
  Serious: Yes (Other)
  Sender: JOHNSON AND JOHNSON
  Company Number: CA-JNJFOC-20240970380

PATIENT
  Age: 41 Year
  Sex: Female

DRUGS (158)
  1. ACETAMINOPHEN [Suspect]
     Active Substance: ACETAMINOPHEN
     Indication: Product used for unknown indication
     Route: 065
  2. TOPAMAX [Suspect]
     Active Substance: TOPIRAMATE
     Indication: Migraine
     Route: 065
  3. TOPAMAX [Suspect]
     Active Substance: TOPIRAMATE
     Route: 065
  4. TRAMADOL HYDROCHLORIDE [Suspect]
     Active Substance: TRAMADOL HYDROCHLORIDE
     Indication: Product used for unknown indication
     Route: 065
  5. TRAMADOL HYDROCHLORIDE [Suspect]
     Active Substance: TRAMADOL HYDROCHLORIDE
     Route: 065
  6. RABEPRAZOLE [Suspect]
     Active Substance: RABEPRAZOLE
     Indication: Migraine
     Route: 065
  7. RABEPRAZOLE [Suspect]
     Active Substance: RABEPRAZOLE
     Route: 065
  8. RABEPRAZOLE [Suspect]
     Active Substance: RABEPRAZOLE
     Route: 065
  9. RABEPRAZOLE [Suspect]
     Active Substance: RABEPRAZOLE
     Route: 065
  10. RABEPRAZOLE [Suspect]
     Active Substance: RABEPRAZOLE
     Route: 065
  11. RABEPRAZOLE [Suspect]
     Active Substance: RABEPRAZOLE
     Route: 065
  12. RABEPRAZOLE [Suspect]
     Active Substance: RABEPRAZOLE
     Route: 065
  13. RABEPRAZOLE [Suspect]
     Active Substance: RABEPRAZOLE
     Route: 065
  14. RABEPRAZOLE [Suspect]
     Active Substance: RABEPRAZOLE
     Route: 065
  15. RABEPRAZOLE [Suspect]
     Active Substance: RABEPRAZOLE
     Route: 065
  16. RABEPRAZOLE [Suspect]
     Active Substance: RABEPRAZOLE
     Route: 065
  17. RABEPRAZOLE [Suspect]
     Active Substance: RABEPRAZOLE
     Route: 065
  18. RABEPRAZOLE [Suspect]
     Active Substance: RABEPRAZOLE
     Route: 065
  19. RABEPRAZOLE [Suspect]
     Active Substance: RABEPRAZOLE
     Route: 065
  20. RABEPRAZOLE [Suspect]
     Active Substance: RABEPRAZOLE
     Route: 065
  21. RABEPRAZOLE [Suspect]
     Active Substance: RABEPRAZOLE
     Route: 065
  22. RABEPRAZOLE [Suspect]
     Active Substance: RABEPRAZOLE
     Route: 065
  23. RABEPRAZOLE [Suspect]
     Active Substance: RABEPRAZOLE
     Route: 065
  24. RABEPRAZOLE [Suspect]
     Active Substance: RABEPRAZOLE
     Route: 065
  25. HYDROMORPHONE [Suspect]
     Active Substance: HYDROMORPHONE
     Indication: Migraine
     Route: 065
  26. HYDROMORPHONE [Suspect]
     Active Substance: HYDROMORPHONE
     Route: 065
  27. HYDROMORPHONE [Suspect]
     Active Substance: HYDROMORPHONE
     Route: 065
  28. HYDROMORPHONE [Suspect]
     Active Substance: HYDROMORPHONE
     Route: 065
  29. HYDROMORPHONE [Suspect]
     Active Substance: HYDROMORPHONE
     Route: 065
  30. HYDROMORPHONE [Suspect]
     Active Substance: HYDROMORPHONE
     Route: 065
  31. HYDROMORPHONE [Suspect]
     Active Substance: HYDROMORPHONE
     Route: 065
  32. HYDROMORPHONE [Suspect]
     Active Substance: HYDROMORPHONE
     Route: 065
  33. HYDROMORPHONE [Suspect]
     Active Substance: HYDROMORPHONE
     Route: 065
  34. HYDROMORPHONE [Suspect]
     Active Substance: HYDROMORPHONE
     Route: 065
  35. HYDROMORPHONE [Suspect]
     Active Substance: HYDROMORPHONE
     Route: 065
  36. HYDROMORPHONE [Suspect]
     Active Substance: HYDROMORPHONE
     Route: 065
  37. AMOXICILLIN TRIHYDRATE [Suspect]
     Active Substance: AMOXICILLIN
     Indication: Product used for unknown indication
     Route: 065
  38. AMOXICILLIN TRIHYDRATE [Suspect]
     Active Substance: AMOXICILLIN
     Route: 065
  39. AMOXICILLIN TRIHYDRATE [Suspect]
     Active Substance: AMOXICILLIN
     Route: 065
  40. AZITHROMYCIN [Suspect]
     Active Substance: AZITHROMYCIN
     Indication: Migraine
     Route: 065
  41. AZITHROMYCIN [Suspect]
     Active Substance: AZITHROMYCIN
     Route: 065
  42. BOTULINUM TOXIN TYPE A [Suspect]
     Active Substance: BOTULINUM TOXIN TYPE A
     Indication: Product used for unknown indication
     Route: 065
  43. BOTULINUM TOXIN TYPE A [Suspect]
     Active Substance: BOTULINUM TOXIN TYPE A
     Route: 065
  44. BOTULINUM TOXIN TYPE A [Suspect]
     Active Substance: BOTULINUM TOXIN TYPE A
     Route: 065
  45. BOTULINUM TOXIN TYPE A [Suspect]
     Active Substance: BOTULINUM TOXIN TYPE A
     Route: 065
  46. BOTULINUM TOXIN TYPE A [Suspect]
     Active Substance: BOTULINUM TOXIN TYPE A
     Route: 065
  47. BOTULINUM TOXIN TYPE A [Suspect]
     Active Substance: BOTULINUM TOXIN TYPE A
     Route: 065
  48. CLOTRIMAZOLE\FLUCONAZOLE [Suspect]
     Active Substance: CLOTRIMAZOLE\FLUCONAZOLE
     Indication: Product used for unknown indication
     Route: 065
  49. CIPRO [Suspect]
     Active Substance: CIPROFLOXACIN HYDROCHLORIDE
     Indication: Migraine
     Route: 065
  50. CIPRO [Suspect]
     Active Substance: CIPROFLOXACIN HYDROCHLORIDE
     Route: 065
  51. CIPRO [Suspect]
     Active Substance: CIPROFLOXACIN HYDROCHLORIDE
     Route: 065
  52. CIPRO [Suspect]
     Active Substance: CIPROFLOXACIN HYDROCHLORIDE
     Route: 065
  53. CLARITHROMYCIN [Suspect]
     Active Substance: CLARITHROMYCIN
     Indication: Product used for unknown indication
     Route: 065
  54. CLARITHROMYCIN [Suspect]
     Active Substance: CLARITHROMYCIN
     Route: 065
  55. CODEINE [Suspect]
     Active Substance: CODEINE
     Indication: Migraine
     Route: 065
  56. CODEINE [Suspect]
     Active Substance: CODEINE
     Route: 065
  57. DEXAMETHASONE [Suspect]
     Active Substance: DEXAMETHASONE
     Indication: Migraine
     Route: 065
  58. DEXAMETHASONE [Suspect]
     Active Substance: DEXAMETHASONE
     Route: 065
  59. DULOXETINE HYDROCHLORIDE [Suspect]
     Active Substance: DULOXETINE HYDROCHLORIDE
     Indication: Migraine
     Route: 065
  60. DULOXETINE HYDROCHLORIDE [Suspect]
     Active Substance: DULOXETINE HYDROCHLORIDE
     Route: 065
  61. ESCITALOPRAM OXALATE [Suspect]
     Active Substance: ESCITALOPRAM OXALATE
     Indication: Migraine
     Route: 065
  62. ESOMEPRAZOLE MAGNESIUM [Suspect]
     Active Substance: ESOMEPRAZOLE MAGNESIUM
     Indication: Migraine
     Route: 065
  63. ESOMEPRAZOLE MAGNESIUM [Suspect]
     Active Substance: ESOMEPRAZOLE MAGNESIUM
     Route: 065
  64. INDOMETHACIN [Suspect]
     Active Substance: INDOMETHACIN
     Indication: Migraine
     Route: 054
  65. INDOMETHACIN [Suspect]
     Active Substance: INDOMETHACIN
     Route: 054
  66. INDOMETHACIN [Suspect]
     Active Substance: INDOMETHACIN
     Route: 054
  67. INDOMETHACIN [Suspect]
     Active Substance: INDOMETHACIN
     Route: 054
  68. INDOMETHACIN [Suspect]
     Active Substance: INDOMETHACIN
     Route: 054
  69. INDOMETHACIN [Suspect]
     Active Substance: INDOMETHACIN
     Route: 065
  70. INDOMETHACIN [Suspect]
     Active Substance: INDOMETHACIN
     Route: 054
  71. INDOMETHACIN [Suspect]
     Active Substance: INDOMETHACIN
     Route: 054
  72. INDOMETHACIN [Suspect]
     Active Substance: INDOMETHACIN
     Route: 054
  73. INDOMETHACIN [Suspect]
     Active Substance: INDOMETHACIN
     Route: 054
  74. INDOMETHACIN [Suspect]
     Active Substance: INDOMETHACIN
     Route: 054
  75. INDOMETHACIN [Suspect]
     Active Substance: INDOMETHACIN
     Route: 054
  76. INDOMETHACIN [Suspect]
     Active Substance: INDOMETHACIN
     Route: 054
  77. INDOMETHACIN [Suspect]
     Active Substance: INDOMETHACIN
     Route: 054
  78. INDOMETHACIN [Suspect]
     Active Substance: INDOMETHACIN
     Route: 054
  79. INDOMETHACIN [Suspect]
     Active Substance: INDOMETHACIN
     Route: 054
  80. INDOMETHACIN [Suspect]
     Active Substance: INDOMETHACIN
     Route: 054
  81. INDOMETHACIN [Suspect]
     Active Substance: INDOMETHACIN
     Route: 054
  82. INDOMETHACIN [Suspect]
     Active Substance: INDOMETHACIN
     Route: 054
  83. INDOMETHACIN [Suspect]
     Active Substance: INDOMETHACIN
     Route: 054
  84. INDOMETHACIN [Suspect]
     Active Substance: INDOMETHACIN
     Route: 054
  85. INDOMETHACIN [Suspect]
     Active Substance: INDOMETHACIN
     Route: 054
  86. INDOMETHACIN [Suspect]
     Active Substance: INDOMETHACIN
     Route: 054
  87. INDOMETHACIN [Suspect]
     Active Substance: INDOMETHACIN
     Route: 054
  88. INDOMETHACIN [Suspect]
     Active Substance: INDOMETHACIN
     Route: 054
  89. INDOMETHACIN [Suspect]
     Active Substance: INDOMETHACIN
     Route: 054
  90. LANSOPRAZOLE [Suspect]
     Active Substance: LANSOPRAZOLE
     Indication: Migraine
     Route: 065
  91. LISINOPRIL [Suspect]
     Active Substance: LISINOPRIL
     Indication: Product used for unknown indication
     Route: 048
  92. LISINOPRIL [Suspect]
     Active Substance: LISINOPRIL
     Route: 048
  93. LISINOPRIL [Suspect]
     Active Substance: LISINOPRIL
     Route: 065
  94. LISINOPRIL [Suspect]
     Active Substance: LISINOPRIL
     Route: 065
  95. MAXALT [Suspect]
     Active Substance: RIZATRIPTAN BENZOATE
     Indication: Migraine
     Route: 065
  96. MAXALT [Suspect]
     Active Substance: RIZATRIPTAN BENZOATE
     Route: 065
  97. MAXALT [Suspect]
     Active Substance: RIZATRIPTAN BENZOATE
     Route: 065
  98. METOCLOPRAMIDE [Suspect]
     Active Substance: METOCLOPRAMIDE
     Indication: Migraine
     Route: 065
  99. METOCLOPRAMIDE [Suspect]
     Active Substance: METOCLOPRAMIDE
     Route: 065
  100. MOMETASONE FUROATE [Suspect]
     Active Substance: MOMETASONE FUROATE
     Indication: Product used for unknown indication
     Route: 065
  101. MOMETASONE FUROATE [Suspect]
     Active Substance: MOMETASONE FUROATE
     Route: 065
  102. MOMETASONE FUROATE [Suspect]
     Active Substance: MOMETASONE FUROATE
     Route: 065
  103. MOMETASONE FUROATE [Suspect]
     Active Substance: MOMETASONE FUROATE
     Route: 065
  104. PREDNISONE [Suspect]
     Active Substance: PREDNISONE
     Indication: Product used for unknown indication
     Route: 065
  105. PREDNISONE [Suspect]
     Active Substance: PREDNISONE
     Route: 065
  106. PROPRANOLOL [Suspect]
     Active Substance: PROPRANOLOL HYDROCHLORIDE
     Indication: Migraine
     Route: 065
  107. PROPRANOLOL [Suspect]
     Active Substance: PROPRANOLOL HYDROCHLORIDE
     Route: 065
  108. PROPRANOLOL [Suspect]
     Active Substance: PROPRANOLOL HYDROCHLORIDE
     Route: 065
  109. ALBUTEROL [Suspect]
     Active Substance: ALBUTEROL
     Indication: Product used for unknown indication
     Route: 065
  110. ALBUTEROL [Suspect]
     Active Substance: ALBUTEROL
     Route: 065
  111. SCOPOLAMINE AMINOXIDE HYDROBROMIDE [Suspect]
     Active Substance: SCOPOLAMINE AMINOXIDE HYDROBROMIDE
     Indication: Migraine
     Route: 065
  112. SERTRALINE HYDROCHLORIDE [Suspect]
     Active Substance: SERTRALINE HYDROCHLORIDE
     Indication: Migraine
     Route: 065
  113. SERTRALINE HYDROCHLORIDE [Suspect]
     Active Substance: SERTRALINE HYDROCHLORIDE
     Route: 065
  114. SUMATRIPTAN SUCCINATE [Suspect]
     Active Substance: SUMATRIPTAN SUCCINATE
     Indication: Migraine
     Route: 065
  115. SUMATRIPTAN SUCCINATE [Suspect]
     Active Substance: SUMATRIPTAN SUCCINATE
     Route: 065
  116. SUMATRIPTAN SUCCINATE [Suspect]
     Active Substance: SUMATRIPTAN SUCCINATE
     Route: 065
  117. TRIMETHOPRIM [Suspect]
     Active Substance: TRIMETHOPRIM
     Indication: Product used for unknown indication
     Route: 065
  118. VENLAFAXINE HYDROCHLORIDE [Suspect]
     Active Substance: VENLAFAXINE HYDROCHLORIDE
     Indication: Product used for unknown indication
     Route: 065
  119. VENLAFAXINE HYDROCHLORIDE [Suspect]
     Active Substance: VENLAFAXINE HYDROCHLORIDE
     Route: 065
  120. ZOLMITRIPTAN [Suspect]
     Active Substance: ZOLMITRIPTAN
     Indication: Product used for unknown indication
     Route: 065
  121. ZOPICLONE [Suspect]
     Active Substance: ZOPICLONE
     Indication: Migraine
     Route: 065
  122. ZOPICLONE [Suspect]
     Active Substance: ZOPICLONE
     Route: 065
  123. ZOPICLONE [Suspect]
     Active Substance: ZOPICLONE
     Route: 065
  124. ZOPICLONE [Suspect]
     Active Substance: ZOPICLONE
     Route: 065
  125. ZOPICLONE [Suspect]
     Active Substance: ZOPICLONE
     Route: 065
  126. ZOPICLONE [Suspect]
     Active Substance: ZOPICLONE
     Route: 065
  127. ZOPICLONE [Suspect]
     Active Substance: ZOPICLONE
     Route: 065
  128. ZOPICLONE [Suspect]
     Active Substance: ZOPICLONE
     Route: 065
  129. ZOPICLONE [Suspect]
     Active Substance: ZOPICLONE
     Route: 065
  130. ZOPICLONE [Suspect]
     Active Substance: ZOPICLONE
     Route: 065
  131. ZOPICLONE [Suspect]
     Active Substance: ZOPICLONE
     Route: 065
  132. ZOPICLONE [Suspect]
     Active Substance: ZOPICLONE
     Route: 065
  133. ZOPICLONE [Suspect]
     Active Substance: ZOPICLONE
     Route: 065
  134. ZOPICLONE [Suspect]
     Active Substance: ZOPICLONE
     Route: 065
  135. ZOPICLONE [Suspect]
     Active Substance: ZOPICLONE
     Route: 065
  136. ZOPICLONE [Suspect]
     Active Substance: ZOPICLONE
     Route: 065
  137. ZOPICLONE [Suspect]
     Active Substance: ZOPICLONE
     Route: 065
  138. ZOPICLONE [Suspect]
     Active Substance: ZOPICLONE
     Route: 065
  139. ZOPICLONE [Suspect]
     Active Substance: ZOPICLONE
     Route: 065
  140. ACETAMINOPHEN\BUTALBITAL\CAFFEINE\CODEINE PHOSPHATE [Concomitant]
     Active Substance: ACETAMINOPHEN\BUTALBITAL\CAFFEINE\CODEINE PHOSPHATE
     Indication: Product used for unknown indication
     Route: 065
  141. AZITHROMYCIN [Concomitant]
     Active Substance: AZITHROMYCIN
     Indication: Product used for unknown indication
     Route: 065
  142. CEFUROXIME SODIUM [Concomitant]
     Active Substance: CEFUROXIME SODIUM
     Indication: Product used for unknown indication
     Route: 065
  143. CEPHALEXIN [Concomitant]
     Active Substance: CEPHALEXIN
     Indication: Product used for unknown indication
     Route: 065
  144. DANAZOL [Concomitant]
     Active Substance: DANAZOL
     Indication: Product used for unknown indication
     Route: 065
  145. CYMBALTA [Concomitant]
     Active Substance: DULOXETINE HYDROCHLORIDE
     Indication: Product used for unknown indication
     Route: 065
  146. FERROUS FUMARATE [Concomitant]
     Active Substance: FERROUS FUMARATE
     Indication: Product used for unknown indication
     Route: 065
  147. FLUOXETINE HYDROCHLORIDE [Concomitant]
     Active Substance: FLUOXETINE HYDROCHLORIDE
     Indication: Product used for unknown indication
     Route: 065
  148. FLUTICASONE [Concomitant]
     Active Substance: FLUTICASONE
     Indication: Product used for unknown indication
     Route: 065
  149. FROVATRIPTAN [Concomitant]
     Active Substance: FROVATRIPTAN
     Indication: Product used for unknown indication
     Route: 065
  150. CLARITHROMYCIN [Concomitant]
     Active Substance: CLARITHROMYCIN
     Indication: Product used for unknown indication
     Route: 065
  151. POLYETHYLENE GLYCOL 3350 [Concomitant]
     Active Substance: POLYETHYLENE GLYCOL 3350
     Indication: Product used for unknown indication
     Route: 065
  152. METOCLOPRAMIDE [Concomitant]
     Active Substance: METOCLOPRAMIDE
     Indication: Product used for unknown indication
     Route: 065
  153. METRONIDAZOLE [Concomitant]
     Active Substance: METRONIDAZOLE
     Indication: Product used for unknown indication
     Route: 065
  154. MORPHINE SULFATE [Concomitant]
     Active Substance: MORPHINE SULFATE
     Indication: Product used for unknown indication
     Route: 065
  155. NAPROXEN [Concomitant]
     Active Substance: NAPROXEN
     Indication: Product used for unknown indication
     Route: 065
  156. OSELTAMIVIR PHOSPHATE [Concomitant]
     Active Substance: OSELTAMIVIR PHOSPHATE
     Indication: Product used for unknown indication
     Route: 065
  157. PANTOPRAZOLE SODIUM [Concomitant]
     Active Substance: PANTOPRAZOLE SODIUM
     Indication: Product used for unknown indication
     Route: 065
  158. SULFADIAZINE\TRIMETHOPRIM [Concomitant]
     Active Substance: SULFADIAZINE\TRIMETHOPRIM
     Indication: Product used for unknown indication
     Route: 065

REACTIONS (9)
  - Drug intolerance [Unknown]
  - Headache [Unknown]
  - Off label use [Unknown]
  - Dysphonia [Unknown]
  - Drug ineffective for unapproved indication [Unknown]
  - Angioedema [Unknown]
  - Hypersensitivity [Unknown]
  - Swelling face [Unknown]
  - Swollen tongue [Unknown]
